FAERS Safety Report 16072200 (Version 2)
Quarter: 2019Q2

REPORT INFORMATION
  Report Type: Spontaneous
  Country: US (occurrence: US)
  Receive Date: 20190314
  Receipt Date: 20190418
  Transmission Date: 20190711
  Serious: No
  Sender: FDA-Public Use
  Company Number: US-SA-2019SA070130

PATIENT
  Age: 61 Year
  Sex: Female

DRUGS (1)
  1. DUPIXENT [Suspect]
     Active Substance: DUPILUMAB
     Indication: ASTHMA
     Dosage: 300 MG, QOW
     Route: 058
     Dates: start: 20190108

REACTIONS (2)
  - Eye irritation [Recovered/Resolved]
  - Oral herpes [Unknown]

NARRATIVE: CASE EVENT DATE: 2019
